FAERS Safety Report 20043728 (Version 1)
Quarter: 2021Q4

REPORT INFORMATION
  Report Type: Report from Study
  Country: US (occurrence: US)
  Receive Date: 20211108
  Receipt Date: 20211108
  Transmission Date: 20220303
  Serious: Yes (Hospitalization)
  Sender: FDA-Public Use
  Company Number: US-JNJFOC-20211107516

PATIENT
  Age: 76 Year
  Sex: Female
  Weight: 69.916 kg

DRUGS (1)
  1. UPTRAVI [Suspect]
     Active Substance: SELEXIPAG
     Indication: Pulmonary arterial hypertension
     Dosage: UPTRAVI 1600 MCG ORALLY 2 TIMES DAILY
     Route: 048

REACTIONS (7)
  - Malaise [Unknown]
  - Speech disorder [Unknown]
  - Hypertension [Unknown]
  - Seizure [Unknown]
  - Product dose omission issue [Unknown]
  - Dyspnoea [Unknown]
  - Memory impairment [Unknown]

NARRATIVE: CASE EVENT DATE: 20210901
